FAERS Safety Report 8354974-7 (Version None)
Quarter: 2012Q2

REPORT INFORMATION
  Report Type: 
  Country: None (occurrence: None)
  Receive Date: 20120511
  Receipt Date: 20120502
  Transmission Date: 20120825
  Serious: Yes (Hospitalization)
  Sender: FDA-Public Use
  Company Number: US-JNJFOC-20120503629

PATIENT
  Sex: Male

DRUGS (1)
  1. NUCYNTA [Suspect]
     Indication: PAIN
     Route: 065

REACTIONS (4)
  - PRESYNCOPE [None]
  - BLOOD CREATINE PHOSPHOKINASE INCREASED [None]
  - TACHYCARDIA [None]
  - HYPERHIDROSIS [None]
